FAERS Safety Report 8401423-6 (Version None)
Quarter: 2012Q2

REPORT INFORMATION
  Report Type: 
  Country: None (occurrence: None)
  Receive Date: 20120525
  Receipt Date: 20120514
  Transmission Date: 20120825
  Serious: Yes (Hospitalization, Other)
  Sender: FDA-Public Use
  Company Number: 2012MA006115

PATIENT
  Sex: Male

DRUGS (1)
  1. EPIRUBICIN HYDROCHLORIDE [Suspect]
     Indication: FOETAL EXPOSURE DURING PREGNANCY
     Dosage: TRPL
     Route: 064

REACTIONS (9)
  - VENTRICULAR HYPOKINESIA [None]
  - PYREXIA [None]
  - WHITE BLOOD CELL COUNT INCREASED [None]
  - C-REACTIVE PROTEIN INCREASED [None]
  - KLEBSIELLA TEST POSITIVE [None]
  - INFECTION [None]
  - STAPHYLOCOCCUS TEST POSITIVE [None]
  - MATERNAL DRUGS AFFECTING FOETUS [None]
  - ACINETOBACTER TEST POSITIVE [None]
